FAERS Safety Report 18410386 (Version 1)
Quarter: 2020Q4

REPORT INFORMATION
  Report Type: Spontaneous
  Country: US (occurrence: US)
  Receive Date: 20201021
  Receipt Date: 20201021
  Transmission Date: 20210114
  Serious: Yes (Other)
  Sender: FDA-Public Use
  Company Number: US-PFIZER INC-2020405266

PATIENT
  Age: 18 Year
  Sex: Female

DRUGS (3)
  1. ERYTHROMYCIN. [Suspect]
     Active Substance: ERYTHROMYCIN
     Indication: PNEUMONIA
     Dosage: 500 MG, 4X/DAY(Q6H)
     Route: 042
  2. ERYTHROMYCIN. [Suspect]
     Active Substance: ERYTHROMYCIN
     Indication: EVIDENCE BASED TREATMENT
  3. AMPICILLIN [Concomitant]
     Active Substance: AMPICILLIN
     Indication: PNEUMONIA
     Dosage: 2 G
     Route: 042

REACTIONS (4)
  - Vomiting [Recovered/Resolved]
  - Incorrect drug administration rate [Unknown]
  - Product administration error [Unknown]
  - Nausea [Recovered/Resolved]
